FAERS Safety Report 21498081 (Version 1)
Quarter: 2022Q4

REPORT INFORMATION
  Report Type: Spontaneous
  Country: US (occurrence: None)
  Receive Date: 20221024
  Receipt Date: 20221024
  Transmission Date: 20230112
  Serious: No
  Sender: FDA-Public Use
  Company Number: 2022A334736

PATIENT
  Sex: Male
  Weight: 98.9 kg

DRUGS (1)
  1. SYMBICORT [Suspect]
     Active Substance: BUDESONIDE\FORMOTEROL FUMARATE DIHYDRATE
     Indication: Dyspnoea exertional
     Route: 055

REACTIONS (3)
  - Dyspnoea [Unknown]
  - Product use issue [Unknown]
  - Product packaging issue [Unknown]
